FAERS Safety Report 20735570 (Version 1)
Quarter: 2022Q2

REPORT INFORMATION
  Report Type: Report from Study
  Country: US (occurrence: US)
  Receive Date: 20220421
  Receipt Date: 20220421
  Transmission Date: 20220721
  Serious: Yes (Other)
  Sender: FDA-Public Use
  Company Number: US-ELI_LILLY_AND_COMPANY-US202112002890

PATIENT
  Sex: Male

DRUGS (4)
  1. BASAGLAR [Suspect]
     Active Substance: INSULIN GLARGINE
     Indication: Blood insulin
     Dosage: 100 U, UNKNOWN
     Route: 065
     Dates: start: 20200508
  2. BASAGLAR [Suspect]
     Active Substance: INSULIN GLARGINE
     Indication: Blood insulin
     Dosage: 100 U, UNKNOWN
     Route: 065
     Dates: start: 20200508
  3. BASAGLAR [Suspect]
     Active Substance: INSULIN GLARGINE
     Dosage: UNK UNK, UNKNOWN
     Route: 065
     Dates: start: 20200508
  4. BASAGLAR [Suspect]
     Active Substance: INSULIN GLARGINE
     Dosage: UNK UNK, UNKNOWN
     Route: 065
     Dates: start: 20200508

REACTIONS (2)
  - Hypoglycaemic unconsciousness [Recovered/Resolved]
  - Overdose [Unknown]
